FAERS Safety Report 9249237 (Version 2)
Quarter: 2013Q2

REPORT INFORMATION
  Report Type: Other
  Country: AR (occurrence: AR)
  Receive Date: 20130423
  Receipt Date: 20130523
  Transmission Date: 20140414
  Serious: No
  Sender: FDA-Public Use
  Company Number: PHHY2013AR039727

PATIENT
  Sex: Female

DRUGS (2)
  1. EXFORGE [Suspect]
     Indication: HYPERTENSION
     Dosage: 1 DF(320/10 MG), A DAY
     Route: 048
  2. EXFORGE [Suspect]
     Indication: ARTERIAL OCCLUSIVE DISEASE

REACTIONS (1)
  - No adverse event [Unknown]
